FAERS Safety Report 7127570-7 (Version None)
Quarter: 2010Q4

REPORT INFORMATION
  Report Type: 
  Country: None (occurrence: None)
  Receive Date: 20101129
  Receipt Date: 20101123
  Transmission Date: 20110411
  Serious: Yes (Other)
  Sender: FDA-Public Use
  Company Number: US-PFIZER INC-2010156393

PATIENT
  Sex: Male

DRUGS (1)
  1. VIAGRA [Suspect]
     Dosage: UNK

REACTIONS (6)
  - BURNING SENSATION [None]
  - EJACULATION DISORDER [None]
  - ERECTION INCREASED [None]
  - INCORRECT DOSE ADMINISTERED [None]
  - PENILE HAEMORRHAGE [None]
  - SPERMATOZOA ABNORMAL [None]
